FAERS Safety Report 8810804 (Version 2)
Quarter: 2012Q4

REPORT INFORMATION
  Report Type: Report from Study
  Country: CA (occurrence: CA)
  Receive Date: 20120927
  Receipt Date: 20121009
  Transmission Date: 20130627
  Serious: Yes (Other)
  Sender: FDA-Public Use
  Company Number: CA-JNJFOC-20120907286

PATIENT
  Age: 16 Year
  Sex: Female
  Weight: 66 kg

DRUGS (7)
  1. REMICADE [Suspect]
     Indication: RHEUMATOID ARTHRITIS
     Route: 042
     Dates: start: 20120927
  2. REMICADE [Suspect]
     Indication: RHEUMATOID ARTHRITIS
     Route: 042
     Dates: start: 20120912
  3. METHOTREXATE [Concomitant]
     Route: 048
     Dates: start: 201106
  4. PLAQUENIL [Concomitant]
     Route: 048
  5. SULFASALAZINE [Concomitant]
     Route: 048
     Dates: start: 201106
  6. FOLIC ACID [Concomitant]
     Route: 048
     Dates: start: 201104
  7. PREDNISONE [Concomitant]
     Route: 048
     Dates: start: 201106

REACTIONS (5)
  - Syncope [Not Recovered/Not Resolved]
  - Rash [Recovered/Resolved]
  - Blood pressure increased [Recovered/Resolved]
  - Mouth ulceration [Recovering/Resolving]
  - Heart rate increased [Not Recovered/Not Resolved]
